FAERS Safety Report 6540236-7 (Version None)
Quarter: 2010Q1

REPORT INFORMATION
  Report Type: 
  Country: None (occurrence: None)
  Receive Date: 20100115
  Receipt Date: 20100105
  Transmission Date: 20100710
  Serious: Yes (Hospitalization, Other)
  Sender: FDA-Public Use
  Company Number: JP-PFIZER INC-2009315449

PATIENT
  Age: 66 Year
  Sex: Female
  Weight: 45.5 kg

DRUGS (5)
  1. ZOLOFT [Suspect]
     Indication: DEPRESSION
     Dosage: 25 MG, 1X/DAY
     Route: 048
     Dates: start: 20080101, end: 20091205
  2. SULPIRIDE [Suspect]
     Indication: DEPRESSION
     Dosage: 50 MG, 1X/DAY
     Route: 048
     Dates: start: 20080101, end: 20091205
  3. DOMPERIDONE [Suspect]
     Indication: PROPHYLAXIS OF NAUSEA AND VOMITING
     Dosage: 10 MG, 1X/DAY
     Route: 048
     Dates: start: 20080101, end: 20091205
  4. BLOPRESS [Concomitant]
     Dosage: UNK
     Route: 048
     Dates: start: 20050107
  5. ALENDRONATE SODIUM [Concomitant]
     Dosage: UNK
     Route: 048
     Dates: start: 20080118

REACTIONS (5)
  - BLOOD CREATINE PHOSPHOKINASE INCREASED [None]
  - DEPRESSION [None]
  - MYALGIA [None]
  - MYOGLOBINURIA [None]
  - RHABDOMYOLYSIS [None]
